FAERS Safety Report 11042872 (Version 1)
Quarter: 2015Q2

REPORT INFORMATION
  Report Type: Spontaneous
  Country: US (occurrence: US)
  Receive Date: 20150417
  Receipt Date: 20150417
  Transmission Date: 20150821
  Serious: No
  Sender: FDA-Public Use
  Company Number: US-009507513-1504USA016645

PATIENT
  Age: 4 Year
  Sex: Male

DRUGS (5)
  1. SINGULAIR [Suspect]
     Active Substance: MONTELUKAST SODIUM
     Indication: ASTHMA
     Dosage: 4 MG ,QD
     Route: 048
     Dates: start: 2013, end: 201409
  2. ZYRTEC [Concomitant]
     Active Substance: CETIRIZINE HYDROCHLORIDE
  3. SINGULAIR [Suspect]
     Active Substance: MONTELUKAST SODIUM
     Indication: ASTHMA
     Dosage: 5 MG, QD
     Route: 048
     Dates: start: 201409
  4. SINGULAIR [Suspect]
     Active Substance: MONTELUKAST SODIUM
     Indication: HYPERSENSITIVITY
     Dosage: 4 MG, QD
     Route: 048
     Dates: start: 201504
  5. SINGULAIR [Suspect]
     Active Substance: MONTELUKAST SODIUM
     Indication: HYPERSENSITIVITY

REACTIONS (3)
  - Drug prescribing error [Unknown]
  - Mood altered [Unknown]
  - Overdose [Unknown]

NARRATIVE: CASE EVENT DATE: 201409
